FAERS Safety Report 25099642 (Version 1)
Quarter: 2025Q1

REPORT INFORMATION
  Report Type: Spontaneous
  Country: TW (occurrence: TW)
  Receive Date: 20250320
  Receipt Date: 20250320
  Transmission Date: 20250409
  Serious: Yes (Death, Life-Threatening, Hospitalization, Other)
  Sender: PFIZER
  Company Number: TW-PFIZER INC-PV202500032254

PATIENT
  Age: 4 Month
  Sex: Male

DRUGS (3)
  1. MEROPENEM [Suspect]
     Active Substance: MEROPENEM
     Indication: Ecthyma
  2. VANCOMYCIN [Suspect]
     Active Substance: VANCOMYCIN
     Indication: Ecthyma
  3. AMIKACIN [Suspect]
     Active Substance: AMIKACIN
     Indication: Ecthyma

REACTIONS (1)
  - Drug ineffective [Fatal]
